FAERS Safety Report 12975626 (Version 1)
Quarter: 2016Q4

REPORT INFORMATION
  Report Type: Spontaneous
  Country: US (occurrence: US)
  Receive Date: 20161125
  Receipt Date: 20161125
  Transmission Date: 20170207
  Serious: Yes (Other)
  Sender: FDA-Public Use
  Company Number: US-JNJFOC-20161026330

PATIENT
  Age: 68 Year
  Sex: Male
  Weight: 88.45 kg

DRUGS (10)
  1. UBIQUINOL [Concomitant]
     Active Substance: UBIQUINOL
     Route: 065
  2. SALMON OIL [Concomitant]
     Active Substance: FISH OIL
     Dosage: 1000X2
     Route: 065
  3. RESVERATROL [Concomitant]
     Active Substance: RESVERATROL
     Route: 065
  4. XARELTO [Suspect]
     Active Substance: RIVAROXABAN
     Indication: PULMONARY EMBOLISM
     Route: 048
     Dates: start: 20160819
  5. ALPHA LIPOIC ACID [Concomitant]
     Active Substance: .ALPHA.-LIPOIC ACID
     Route: 065
  6. BETA-SITOSTEROL [Concomitant]
     Dosage: 300MGX2
     Route: 065
  7. KYOLIC [Concomitant]
     Route: 065
  8. CURCUMIN [Concomitant]
     Active Substance: CURCUMIN
     Route: 065
  9. GINKGO BILOBA [Concomitant]
     Active Substance: GINKGO
     Route: 065
  10. ACETYL L CARNITINE [Concomitant]
     Route: 065

REACTIONS (3)
  - Headache [Not Recovered/Not Resolved]
  - Depressed level of consciousness [Not Recovered/Not Resolved]
  - Cognitive disorder [Not Recovered/Not Resolved]

NARRATIVE: CASE EVENT DATE: 201608
